FAERS Safety Report 6719904-X (Version None)
Quarter: 2010Q2

REPORT INFORMATION
  Report Type: 
  Country: None (occurrence: None)
  Receive Date: 20100511
  Receipt Date: 20100506
  Transmission Date: 20101027
  Serious: Yes (Other)
  Sender: FDA-Public Use
  Company Number: US-CEPHALON-2010002642

PATIENT
  Age: 60 Year
  Sex: Male

DRUGS (1)
  1. NUVIGIL [Suspect]
     Indication: NARCOLEPSY
     Route: 048
     Dates: start: 20100429, end: 20100506

REACTIONS (5)
  - AGITATION [None]
  - DYSARTHRIA [None]
  - DYSKINESIA [None]
  - MENTAL IMPAIRMENT [None]
  - TREMOR [None]
